FAERS Safety Report 23837103 (Version 1)
Quarter: 2024Q2

REPORT INFORMATION
  Report Type: Spontaneous
  Country: CN (occurrence: CN)
  Receive Date: 20240509
  Receipt Date: 20240509
  Transmission Date: 20240716
  Serious: Yes (Hospitalization)
  Sender: FDA-Public Use
  Company Number: CN-SA-SAC20240501001518

PATIENT
  Age: 84 Year
  Sex: Male
  Weight: 71 kg

DRUGS (2)
  1. CLOPIDOGREL BISULFATE [Suspect]
     Active Substance: CLOPIDOGREL BISULFATE
     Indication: Arteriosclerosis
     Dosage: 75 MG, QD
     Route: 048
     Dates: start: 20240401, end: 20240410
  2. CLOPIDOGREL BISULFATE [Suspect]
     Active Substance: CLOPIDOGREL BISULFATE
     Indication: Antiplatelet therapy
     Dosage: 37.5 MG
     Route: 048
     Dates: start: 20240417

REACTIONS (3)
  - Petechiae [Recovering/Resolving]
  - Platelet count decreased [Recovering/Resolving]
  - Ecchymosis [Recovering/Resolving]

NARRATIVE: CASE EVENT DATE: 20240410
